FAERS Safety Report 6688448-6 (Version None)
Quarter: 2010Q2

REPORT INFORMATION
  Report Type: 
  Country: None (occurrence: None)
  Receive Date: 20100420
  Receipt Date: 20100408
  Transmission Date: 20101027
  Serious: Yes (Other)
  Sender: FDA-Public Use
  Company Number: AU-JNJFOC-20100404627

PATIENT
  Sex: Female

DRUGS (8)
  1. TRAMADOL HYDROCHLORIDE [Suspect]
     Indication: DRUG USE FOR UNKNOWN INDICATION
     Dosage: AS NEEDED
     Route: 065
  2. CEFAZOLIN [Concomitant]
     Route: 065
  3. EZETIMIBE [Concomitant]
     Route: 065
  4. HEPARIN SODIUM [Concomitant]
     Route: 065
  5. METOCLOPRAMIDE HYDROCHLORIDE [Concomitant]
     Route: 065
  6. MORPHINE [Concomitant]
     Route: 065
  7. PARACETAMOL [Concomitant]
     Route: 065
  8. TIOTROPIUM [Concomitant]
     Route: 065

REACTIONS (2)
  - HALLUCINATION [None]
  - PARANOIA [None]
